FAERS Safety Report 7957073-9 (Version None)
Quarter: 2011Q4

REPORT INFORMATION
  Report Type: 
  Country: None (occurrence: None)
  Receive Date: 20111205
  Receipt Date: 20111128
  Transmission Date: 20120403
  Serious: Yes (Death)
  Sender: FDA-Public Use
  Company Number: HU-UCBSA-035299

PATIENT
  Age: 52 Year
  Sex: Female
  Weight: 80 kg

DRUGS (5)
  1. STEROIDS [Concomitant]
     Route: 014
  2. METHOTREXATE [Concomitant]
     Indication: RHEUMATOID ARTHRITIS
     Route: 048
     Dates: start: 20100201
  3. CIMZIA [Suspect]
     Indication: RHEUMATOID ARTHRITIS
     Route: 058
     Dates: start: 20101103, end: 20110505
  4. NAPROXEN [Concomitant]
     Indication: RHEUMATOID ARTHRITIS
     Route: 048
     Dates: start: 20100630
  5. LEFLUNOMIDE [Concomitant]
     Indication: RHEUMATOID ARTHRITIS
     Route: 048
     Dates: start: 20100301

REACTIONS (9)
  - ABDOMINAL PAIN [None]
  - VOMITING [None]
  - FACIAL PARESIS [None]
  - SEPSIS [None]
  - CHOLECYSTITIS ACUTE [None]
  - PYREXIA [None]
  - DISORIENTATION [None]
  - APHASIA [None]
  - TUBERCULOSIS [None]
